FAERS Safety Report 8007739-X (Version None)
Quarter: 2011Q4

REPORT INFORMATION
  Report Type: 
  Country: None (occurrence: None)
  Receive Date: 20111227
  Receipt Date: 20110426
  Transmission Date: 20120403
  Serious: No
  Sender: FDA-Public Use
  Company Number: US-ABBOTT-11P-163-0721608-00

PATIENT
  Sex: Male
  Weight: 122.58 kg

DRUGS (2)
  1. UNKNOWN BLOOD PRESSURE PILL [Concomitant]
     Indication: HYPERTENSION
  2. LUPRON DEPOT [Suspect]
     Indication: PROSTATE CANCER
     Dates: start: 20100825

REACTIONS (2)
  - GINGIVAL DISORDER [None]
  - TOOTH FRACTURE [None]
